FAERS Safety Report 12928329 (Version 2)
Quarter: 2016Q4

REPORT INFORMATION
  Report Type: Spontaneous
  Country: IT (occurrence: IT)
  Receive Date: 20161110
  Receipt Date: 20161111
  Transmission Date: 20170207
  Serious: Yes (Other)
  Sender: FDA-Public Use
  Company Number: IT-CIPLA LTD.-2016IT20780

PATIENT

DRUGS (1)
  1. TOPIRAMATE. [Suspect]
     Active Substance: TOPIRAMATE
     Indication: PARTIAL SEIZURES
     Dosage: 25 MG/WEEK UP TO 150 MG/DAY
     Route: 065

REACTIONS (3)
  - Erectile dysfunction [Recovered/Resolved]
  - Libido increased [Recovered/Resolved]
  - Therapeutic response decreased [Unknown]
